FAERS Safety Report 8969126 (Version 1)
Quarter: 2012Q4

REPORT INFORMATION
  Report Type: 
  Country: BR (occurrence: BR)
  Receive Date: 20121217
  Receipt Date: 20121217
  Transmission Date: 20130627
  Serious: Yes (Death)
  Sender: FDA-Public Use
  Company Number: BR-PFIZER INC-2012314490

PATIENT
  Age: 72 Year
  Sex: Male
  Weight: 98 kg

DRUGS (5)
  1. XALATAN [Suspect]
     Dosage: UNK
     Route: 047
     Dates: start: 201206
  2. CAPTOPRIL [Concomitant]
     Indication: BLOOD PRESSURE HIGH
     Dosage: UNK
     Dates: start: 2007
  3. GLIFAGE [Concomitant]
     Indication: DIABETES
     Dosage: UNK
     Dates: start: 2010
  4. ENALAPRIL [Concomitant]
     Indication: BLOOD PRESSURE HIGH
     Dosage: UNK
     Dates: start: 2007
  5. MONOCORDIL [Concomitant]
     Indication: BLOOD PRESSURE HIGH
     Dosage: UNK
     Dates: start: 2007

REACTIONS (1)
  - Cerebrovascular accident [Fatal]
